FAERS Safety Report 21604617 (Version 2)
Quarter: 2022Q4

REPORT INFORMATION
  Report Type: Spontaneous
  Country: JP (occurrence: JP)
  Receive Date: 20221116
  Receipt Date: 20221129
  Transmission Date: 20230112
  Serious: Yes (Life-Threatening, Hospitalization)
  Sender: FDA-Public Use
  Company Number: JP-TEVA-2022-JP-2826205

PATIENT
  Age: 74 Year
  Sex: Male

DRUGS (2)
  1. PREDNISOLONE [Suspect]
     Active Substance: PREDNISOLONE
     Indication: Asthma
     Route: 065
  2. PREDNISOLONE [Suspect]
     Active Substance: PREDNISOLONE
     Indication: Nephritic syndrome

REACTIONS (20)
  - Steroid diabetes [Unknown]
  - Immunosuppression [Unknown]
  - Non-alcoholic steatohepatitis [Unknown]
  - Hypogonadism [Unknown]
  - Septic shock [Unknown]
  - Respiratory failure [Unknown]
  - Renal failure [Recovering/Resolving]
  - Pulmonary embolism [Unknown]
  - Intensive care unit acquired weakness [Unknown]
  - Cellulitis [Recovering/Resolving]
  - Sinus tachycardia [Unknown]
  - Chronic gastritis [Unknown]
  - Cerebral ischaemia [Unknown]
  - Postictal paralysis [Unknown]
  - Transient ischaemic attack [Unknown]
  - Anaemia [Unknown]
  - Adrenal insufficiency [Unknown]
  - Hyperkalaemia [Unknown]
  - Bundle branch block right [Unknown]
  - Hemiparesis [Unknown]
